FAERS Safety Report 15190070 (Version 1)
Quarter: 2018Q3

REPORT INFORMATION
  Report Type: Spontaneous
  Country: US (occurrence: US)
  Receive Date: 20180625
  Receipt Date: 20180625
  Transmission Date: 20181010
  Serious: No
  Sender: FDA-Public Use
  Company Number: None

PATIENT
  Age: 23 Year
  Sex: Female
  Weight: 64.41 kg

DRUGS (3)
  1. TYLENOL [Concomitant]
     Active Substance: ACETAMINOPHEN
  2. MIRENA [Suspect]
     Active Substance: LEVONORGESTREL
  3. FLUOXETINE [Concomitant]
     Active Substance: FLUOXETINE HYDROCHLORIDE

REACTIONS (8)
  - Dyspareunia [None]
  - Depression [None]
  - Complication of device insertion [None]
  - Economic problem [None]
  - Device dislocation [None]
  - Abdominal pain [None]
  - Complication of device removal [None]
  - Coital bleeding [None]
